FAERS Safety Report 9523423 (Version 1)
Quarter: 2013Q1

REPORT INFORMATION
  Report Type: Spontaneous
  Country: US (occurrence: None)
  Receive Date: 20130305
  Receipt Date: 20130305
  Transmission Date: 20140127
  Serious: Yes (Hospitalization)
  Sender: FDA-Public Use
  Company Number: 163-21880-12012593

PATIENT
  Age: 54 Year
  Sex: Female

DRUGS (19)
  1. REVLIMID (LENALIDOMIDE) (CAPSULES) [Suspect]
     Indication: PLASMA CELL MYELOMA
     Dosage: 21 IN 28 D
     Route: 048
     Dates: start: 20110628, end: 20110712
  2. CHLORTHALIDONE [Suspect]
     Indication: PRODUCT USED FOR UNKNOWN INDICATION
  3. ATENOLOL (ATENOLOL) [Concomitant]
  4. PRAVASTATIN (PRAVASTATIN) [Concomitant]
  5. CLONIDINE (CLONIDINE) [Concomitant]
  6. AMLODIPINE (AMLODIPINE) [Concomitant]
  7. ASA (ACETYLSALICYLIC ACID) [Concomitant]
  8. CARBAMAZEPINE (CARBAMAZEPINE) [Concomitant]
  9. GABAPENTIN (GABAPENTIN) [Concomitant]
  10. CYMBALTA (DULOXETINE HYDROCHLORIDE) [Concomitant]
  11. ALPRAZOLAM (ALPRAZOLAM) [Concomitant]
  12. REQUIP (ROPINIROLE HYDROCHLORIDE) [Concomitant]
  13. SINGULAIR (MONTELUKAST) 10MG [Concomitant]
  14. FLUTICASONE (FLUTICASONE) (SPRAY (NOT INHALATION)) [Concomitant]
  15. TRAVATAN (TRAVAPROST) (EYE DROPS) [Concomitant]
  16. ZOFRAN (ONDANSETRON HYDROCHLORIDE) [Concomitant]
  17. DEXAMETHASONE (DEXAMETHASONE) [Concomitant]
  18. VITAMIN D (ERGOCALCIFEROL) [Concomitant]
  19. BABY ASPIRIN (ACETYLSALICYLIC ACID) [Concomitant]

REACTIONS (7)
  - Hypokalaemia [None]
  - Nausea [None]
  - Vomiting [None]
  - Dizziness [None]
  - Dehydration [None]
  - Asthenia [None]
  - Pyrexia [None]
